FAERS Safety Report 4655259-2 (Version None)
Quarter: 2005Q2

REPORT INFORMATION
  Report Type: 
  Country: None (occurrence: None)
  Receive Date: 20050506
  Receipt Date: 20050427
  Transmission Date: 20051028
  Serious: Yes (Other)
  Sender: FDA-Public Use
  Company Number: DE-JNJFOC-20050201059

PATIENT
  Sex: Female
  Weight: 63 kg

DRUGS (5)
  1. REMINYL [Suspect]
     Route: 049
  2. REMINYL [Suspect]
     Route: 049
  3. REMINYL [Suspect]
     Route: 049
  4. REMINYL [Suspect]
     Indication: DEMENTIA
     Route: 049
  5. RAMIPRIL [Interacting]
     Route: 049

REACTIONS (3)
  - BLOOD PRESSURE SYSTOLIC INCREASED [None]
  - DRUG INTERACTION [None]
  - HEADACHE [None]
